FAERS Safety Report 6506737-2 (Version None)
Quarter: 2009Q4

REPORT INFORMATION
  Report Type: 
  Country: None (occurrence: None)
  Receive Date: 20091221
  Receipt Date: 20091210
  Transmission Date: 20100525
  Serious: Yes (Hospitalization, Other)
  Sender: FDA-Public Use
  Company Number: US-AMGEN-QUU379536

PATIENT
  Sex: Male

DRUGS (2)
  1. ENBREL [Suspect]
     Indication: PSORIASIS
     Route: 058
     Dates: start: 20040909
  2. FLUOROURACIL [Concomitant]

REACTIONS (5)
  - BONE MARROW DISORDER [None]
  - DYSPEPSIA [None]
  - HEPATIC ENZYME INCREASED [None]
  - PSORIASIS [None]
  - SKIN CANCER [None]
